FAERS Safety Report 4829286-6 (Version None)
Quarter: 2005Q4

REPORT INFORMATION
  Report Type: 
  Country: None (occurrence: None)
  Receive Date: 20051116
  Receipt Date: 20051110
  Transmission Date: 20060501
  Serious: Yes (Hospitalization)
  Sender: FDA-Public Use
  Company Number: 2005-UK-01889UK

PATIENT
  Age: 31 Year
  Sex: Female

DRUGS (15)
  1. ZIDOVUDINE [Suspect]
     Indication: HIV INFECTION
     Route: 065
  2. LAMIVUDINE [Suspect]
     Indication: HIV INFECTION
     Route: 065
  3. NEVIRAPINE [Suspect]
     Indication: HIV INFECTION
     Route: 065
  4. EFAVIRENZ [Suspect]
     Indication: HIV INFECTION
     Route: 065
  5. TENOFOVIR [Suspect]
     Indication: HIV INFECTION
     Route: 065
  6. DIDANOSINE [Suspect]
     Indication: HIV INFECTION
     Route: 065
  7. CO-TRIMOXAZOLE [Concomitant]
     Route: 065
  8. LOPINAVIR [Concomitant]
     Indication: HIV INFECTION
     Route: 065
  9. CIDOFOVIR [Concomitant]
     Route: 065
  10. RIFAMPICIN [Concomitant]
     Route: 065
  11. ISONIAZID [Concomitant]
     Route: 065
  12. PYRAZINAMIDE [Concomitant]
     Route: 065
  13. ETHAMBUTOL HCL [Concomitant]
     Route: 065
  14. PYRIDOXINE HYDROCHLORIDE [Concomitant]
     Route: 065
  15. METHYLPREDNISOLONE [Concomitant]
     Indication: DEMYELINATION
     Route: 065

REACTIONS (19)
  - APRAXIA [None]
  - AREFLEXIA [None]
  - BLOOD VISCOSITY INCREASED [None]
  - COORDINATION ABNORMAL [None]
  - DEPRESSED MOOD [None]
  - DYSARTHRIA [None]
  - FALL [None]
  - FATIGUE [None]
  - GAZE PALSY [None]
  - HEADACHE [None]
  - IMMUNE RECONSTITUTION SYNDROME [None]
  - MENTAL DISORDER [None]
  - NAUSEA [None]
  - NIGHTMARE [None]
  - PARALYSIS [None]
  - SOMNOLENCE [None]
  - TUBERCULOSIS [None]
  - UPPER MOTOR NEURONE LESION [None]
  - VOMITING [None]
